FAERS Safety Report 8047135-2 (Version None)
Quarter: 2012Q1

REPORT INFORMATION
  Report Type: 
  Country: None (occurrence: None)
  Receive Date: 20120116
  Receipt Date: 20120111
  Transmission Date: 20120608
  Serious: Yes (Life-Threatening, Other)
  Sender: FDA-Public Use
  Company Number: US-JNJFOC-2009031504

PATIENT
  Sex: Male
  Weight: 19.4 kg

DRUGS (2)
  1. CHILDREN'S SUDAFED PE NASAL DECONGESTANT [Suspect]
     Indication: RHINORRHOEA
     Dosage: DAILY DOSE TEXT: ONE TSP - THREE TIMES TOTAL
     Route: 048
     Dates: start: 20090807, end: 20091216
  2. RINOCORT [Concomitant]
     Indication: NASAL DISORDER
     Dosage: DAILY DOSE TEXT: 1 SPRAY PER NOSTRIL
     Route: 045
     Dates: start: 20090101

REACTIONS (2)
  - ANAPHYLACTIC REACTION [None]
  - ABDOMINAL PAIN [None]
